FAERS Safety Report 8492381 (Version 6)
Quarter: 2012Q4

REPORT INFORMATION
  Report Type: Report from Study
  Country: US (occurrence: US)
  Receive Date: 20120403
  Receipt Date: 20120922
  Transmission Date: 20130627
  Serious: Yes (Hospitalization, Other)
  Sender: FDA-Public Use
  Company Number: US-ABBOTT-12P-163-0918903-00

PATIENT
  Age: 60 Year
  Sex: Female

DRUGS (12)
  1. HUMIRA 40 MG/0.8 ML PEN [Suspect]
     Indication: CROHN^S DISEASE
     Dosage: (160mg loading dose)
     Dates: start: 20120225, end: 20120225
  2. HUMIRA 40 MG/0.8 ML PEN [Suspect]
     Dosage: (80mg)
     Dates: start: 20120310, end: 20120310
  3. HUMIRA 40 MG/0.8 ML PEN [Suspect]
  4. HUMIRA 40 MG/0.8 ML PEN [Suspect]
     Dosage: Stopped when hospitalized
     Dates: start: 20120407, end: 20120818
  5. VICODIN [Suspect]
     Indication: PAIN
     Dates: start: 20120730
  6. VICODIN [Suspect]
     Indication: RIB FRACTURE
  7. METHOTREXATE [Concomitant]
     Indication: CROHN^S DISEASE
  8. SYNTHROID [Concomitant]
     Indication: HYPOTHYROIDISM
  9. CELEXA [Concomitant]
     Indication: ANXIETY
     Dosage: Daily
  10. FOLIC ACID [Concomitant]
     Indication: PRODUCT USED FOR UNKNOWN INDICATION
  11. VITAMIN B 12 [Concomitant]
     Indication: PRODUCT USED FOR UNKNOWN INDICATION
  12. VITAMIN D [Concomitant]
     Indication: PRODUCT USED FOR UNKNOWN INDICATION
     Dosage: Daily

REACTIONS (12)
  - Gastrointestinal inflammation [Recovered/Resolved]
  - Gastrointestinal infection [Recovered/Resolved]
  - Hernia [Not Recovered/Not Resolved]
  - Muscle strain [Recovering/Resolving]
  - Clostridium difficile infection [Unknown]
  - Diarrhoea [Recovering/Resolving]
  - Affect lability [Not Recovered/Not Resolved]
  - Somnolence [Recovered/Resolved]
  - Injection site pain [Not Recovered/Not Resolved]
  - Viral diarrhoea [Not Recovered/Not Resolved]
  - Anxiety [Not Recovered/Not Resolved]
  - Pain [Unknown]
